FAERS Safety Report 6443709-0 (Version None)
Quarter: 2009Q4

REPORT INFORMATION
  Report Type: 
  Country: None (occurrence: None)
  Receive Date: 20091117
  Receipt Date: 20091103
  Transmission Date: 20100525
  Serious: Yes (Hospitalization)
  Sender: FDA-Public Use
  Company Number: HK-MYLANLABS-2009S1019109

PATIENT
  Age: 44 Year
  Sex: Female

DRUGS (1)
  1. THIAMAZOLE [Suspect]
     Indication: HYPERTHYROIDISM

REACTIONS (2)
  - HAEMATURIA [None]
  - PULMONARY ALVEOLAR HAEMORRHAGE [None]
